FAERS Safety Report 9003195 (Version 2)
Quarter: 2013Q4

REPORT INFORMATION
  Report Type: Report from Study
  Country: NL (occurrence: NL)
  Receive Date: 20130108
  Receipt Date: 20131008
  Transmission Date: 20140711
  Serious: Yes (Other)
  Sender: FDA-Public Use
  Company Number: NL-ELI_LILLY_AND_COMPANY-NL201209003151

PATIENT
  Age: 52 Year
  Sex: Female
  Weight: 70 kg

DRUGS (16)
  1. TERIPARATIDE [Suspect]
     Indication: OSTEOPOROSIS
     Dosage: 20 UG, QD
     Route: 058
     Dates: start: 20120830
  2. ACENOCOUMAROL [Concomitant]
     Indication: ANTICOAGULANT THERAPY
     Dosage: 1 MG, ACCORDING SCHEME
     Route: 048
     Dates: start: 201103
  3. ACETYLSALICYLZUUR [Concomitant]
     Indication: ANTICOAGULANT THERAPY
     Dosage: 80 MG, QD
     Route: 048
     Dates: start: 20120202
  4. AMLODIPINE MALEATE [Concomitant]
     Indication: HYPERTENSION
     Dosage: 10 MG, QD
     Route: 048
     Dates: start: 201202
  5. CALCIUM CARBONATE [Concomitant]
     Indication: CALCIUM DEFICIENCY
     Dosage: 500 MG, QD
     Route: 048
     Dates: start: 20120302
  6. COTRIMOXAZOL [Concomitant]
     Indication: LUNG TRANSPLANT
     Dosage: 400 MG, QD
     Route: 048
     Dates: start: 2010
  7. FUROSEMIDE [Concomitant]
     Indication: FLUID RETENTION
     Dosage: 20 MG, QOD
     Route: 048
     Dates: start: 201002
  8. METFORMINE [Concomitant]
     Indication: TYPE 2 DIABETES MELLITUS
     Dosage: 1000 MG, BID
     Route: 048
     Dates: start: 201109
  9. METOPROLOL SUCCINATE [Concomitant]
     Indication: HYPERTENSION
     Dosage: 50 MG, TID
     Route: 048
  10. MYCOPHENOLIC ACID [Concomitant]
     Indication: PROPHYLAXIS
     Dosage: 250 MG, BID
     Route: 048
     Dates: start: 200905
  11. OXYCODON [Concomitant]
     Indication: PAIN
     Dosage: 5 MG, PRN
     Route: 048
     Dates: start: 201103
  12. PANTOPRAZOL [Concomitant]
     Indication: ABDOMINAL DISCOMFORT
     Dosage: 40 MG, BID
     Route: 048
     Dates: start: 2008
  13. PARACETAMOL [Concomitant]
     Indication: PAIN
     Dosage: 1000 MG, PRN
     Route: 048
  14. PREDNISON [Concomitant]
     Indication: PROPHYLAXIS
     Dosage: 7.5 MG, QD
     Route: 048
     Dates: start: 2007
  15. PREGABALIN [Concomitant]
     Indication: PAIN
     Dosage: 75 MG, BID
     Route: 048
     Dates: start: 2007
  16. SIMVASTATINE [Concomitant]
     Indication: BLOOD CHOLESTEROL INCREASED
     Dosage: 40 MG, QD
     Route: 048

REACTIONS (7)
  - Complications of transplanted kidney [Unknown]
  - Blood glucose increased [Recovering/Resolving]
  - Diabetes mellitus inadequate control [Recovering/Resolving]
  - Weight decreased [Unknown]
  - Neck pain [Unknown]
  - Headache [Unknown]
  - Blood test abnormal [Unknown]
